FAERS Safety Report 4986234-6 (Version None)
Quarter: 2006Q2

REPORT INFORMATION
  Report Type: 
  Country: None (occurrence: None)
  Receive Date: 20060424
  Receipt Date: 20060412
  Transmission Date: 20061013
  Serious: Yes (Hospitalization)
  Sender: FDA-Public Use
  Company Number: 012214

PATIENT
  Age: 31 Year
  Sex: Male

DRUGS (1)
  1. PRIAL (ZICONOTIDE INTRATHECAL INFUSION ) SOLUTION [Suspect]
     Indication: COMPLEX REGIONAL PAIN SYNDROME
     Dosage: UG, ONCE/HOUR, INTRATHECAL
     Route: 037

REACTIONS (4)
  - DELUSION [None]
  - HALLUCINATION, AUDITORY [None]
  - MENTAL DISORDER [None]
  - PAIN [None]
